FAERS Safety Report 7415689-2 (Version None)
Quarter: 2011Q2

REPORT INFORMATION
  Report Type: 
  Country: None (occurrence: None)
  Receive Date: 20110414
  Receipt Date: 20110406
  Transmission Date: 20111010
  Serious: Yes (Other)
  Sender: FDA-Public Use
  Company Number: GB-MERCK-1104GBR00027

PATIENT
  Age: 88 Year
  Sex: Male

DRUGS (1)
  1. ZETIA [Suspect]
     Route: 048
     Dates: start: 19960101

REACTIONS (2)
  - CEREBROVASCULAR ACCIDENT [None]
  - DRUG INEFFECTIVE [None]
